FAERS Safety Report 25750751 (Version 2)
Quarter: 2025Q3

REPORT INFORMATION
  Report Type: Report from Study
  Country: US (occurrence: US)
  Receive Date: 20250902
  Receipt Date: 20250926
  Transmission Date: 20251020
  Serious: Yes (Hospitalization, Other)
  Sender: MYLAN
  Company Number: US-MYLANLABS-2025M1074107

PATIENT
  Age: 55 Year
  Sex: Female

DRUGS (4)
  1. PREDNISONE [Suspect]
     Active Substance: PREDNISONE
     Indication: Systemic lupus erythematosus
  2. PREDNISONE [Suspect]
     Active Substance: PREDNISONE
     Route: 048
  3. PREDNISONE [Suspect]
     Active Substance: PREDNISONE
     Route: 048
  4. PREDNISONE [Suspect]
     Active Substance: PREDNISONE

REACTIONS (5)
  - Psychotic disorder [Recovered/Resolved]
  - Hallucination [Unknown]
  - Gait inability [Unknown]
  - Asthenia [Unknown]
  - Anxiety [Unknown]
